FAERS Safety Report 18218259 (Version 1)
Quarter: 2020Q3

REPORT INFORMATION
  Report Type: Spontaneous
  Country: CA (occurrence: CA)
  Receive Date: 20200901
  Receipt Date: 20200901
  Transmission Date: 20201103
  Serious: Yes (Life-Threatening, Other)
  Sender: FDA-Public Use
  Company Number: CA-PFIZER INC-2020335524

PATIENT
  Sex: Male

DRUGS (6)
  1. PLAQUENIL [Suspect]
     Active Substance: HYDROXYCHLOROQUINE SULFATE
     Dosage: UNK
  2. RABEPRAZOLE [Concomitant]
     Active Substance: RABEPRAZOLE
  3. FOLIC ACID. [Suspect]
     Active Substance: FOLIC ACID
  4. METHOTREXATE SODIUM. [Suspect]
     Active Substance: METHOTREXATE SODIUM
     Indication: RHEUMATOID ARTHRITIS
     Dosage: 25 MG, WEEKLY
     Route: 058
     Dates: start: 201108, end: 201612
  5. SULFASALAZINE. [Suspect]
     Active Substance: SULFASALAZINE
     Indication: RHEUMATOID ARTHRITIS
  6. LEFLUNOMIDE. [Suspect]
     Active Substance: LEFLUNOMIDE

REACTIONS (3)
  - Drug ineffective [Unknown]
  - Gastrointestinal haemorrhage [Unknown]
  - Gastrointestinal disorder [Unknown]
